FAERS Safety Report 14664777 (Version 1)
Quarter: 2018Q1

REPORT INFORMATION
  Report Type: Spontaneous
  Country: CA (occurrence: CA)
  Receive Date: 20180321
  Receipt Date: 20180321
  Transmission Date: 20180509
  Serious: Yes (Disabling, Other)
  Sender: FDA-Public Use
  Company Number: CA-BAYER-2018-051353

PATIENT
  Age: 31 Year
  Sex: Female
  Weight: 68.93 kg

DRUGS (4)
  1. MIRENA [Suspect]
     Active Substance: LEVONORGESTREL
     Indication: DYSMENORRHOEA
  2. MIRENA [Suspect]
     Active Substance: LEVONORGESTREL
     Indication: CONTRACEPTION
  3. MIRENA [Suspect]
     Active Substance: LEVONORGESTREL
     Indication: CONTRACEPTION
  4. MIRENA [Suspect]
     Active Substance: LEVONORGESTREL
     Indication: DYSMENORRHOEA
     Dosage: 20 MCG/24HR, CONT
     Route: 015

REACTIONS (10)
  - Pelvic pain [Recovering/Resolving]
  - Impaired work ability [Recovering/Resolving]
  - Confusional state [Recovering/Resolving]
  - Depressed mood [Recovering/Resolving]
  - Fatigue [Recovering/Resolving]
  - Loss of libido [Recovering/Resolving]
  - Ovarian cyst [Recovering/Resolving]
  - Depression [Recovering/Resolving]
  - Intra-uterine contraceptive device removal [Recovering/Resolving]
  - Decreased interest [Recovering/Resolving]
